FAERS Safety Report 4569323-X (Version None)
Quarter: 2005Q1

REPORT INFORMATION
  Report Type: 
  Country: None (occurrence: None)
  Receive Date: 20050201
  Receipt Date: 20050119
  Transmission Date: 20050727
  Serious: Yes (Hospitalization)
  Sender: FDA-Public Use
  Company Number: 208921

PATIENT
  Age: 52 Year
  Sex: Male
  Weight: 63 kg

DRUGS (14)
  1. AVASTIN [Suspect]
     Indication: HEPATIC NEOPLASM MALIGNANT
     Dosage: 10 MG/KG, Q2W, INTRAVENOUS
     Route: 042
     Dates: start: 20040901
  2. LOVENOX [Concomitant]
  3. OXYCODONE (OXYCODONE) [Concomitant]
  4. TOPROL (METOPROLOL SUCCINATE) [Concomitant]
  5. ZESTRIL [Concomitant]
  6. PLAVIX [Concomitant]
  7. LIPITOR [Concomitant]
  8. HYOSCYAMINE (HYOSCYAMINE) [Concomitant]
  9. COMPAZINE [Concomitant]
  10. LEXAPRO [Concomitant]
  11. ATIVAN [Concomitant]
  12. FOLATE (FOLATE SODIUM) [Concomitant]
  13. LORAZEPAM [Concomitant]
  14. CARISOPRODOL [Concomitant]

REACTIONS (24)
  - ABDOMINAL DISTENSION [None]
  - ACUTE ABDOMEN [None]
  - ASCITES [None]
  - BLOOD CULTURE POSITIVE [None]
  - BLOOD PRESSURE SYSTOLIC DECREASED [None]
  - BODY TEMPERATURE INCREASED [None]
  - BUNDLE BRANCH BLOCK RIGHT [None]
  - CLOSTRIDIAL INFECTION [None]
  - CONFUSIONAL STATE [None]
  - FAECAL INCONTINENCE [None]
  - FEELING HOT [None]
  - FLATULENCE [None]
  - FLUSHING [None]
  - HEPATIC NEOPLASM MALIGNANT [None]
  - ILEUS [None]
  - JEJUNAL PERFORATION [None]
  - LOBAR PNEUMONIA [None]
  - MALIGNANT NEOPLASM PROGRESSION [None]
  - METASTASES TO LIVER [None]
  - METASTATIC NEOPLASM [None]
  - PAIN [None]
  - POSTOPERATIVE ILEUS [None]
  - PYREXIA [None]
  - SINUS TACHYCARDIA [None]
